FAERS Safety Report 19058459 (Version 3)
Quarter: 2022Q1

REPORT INFORMATION
  Report Type: Report from Study
  Country: CA (occurrence: CA)
  Receive Date: 20210325
  Receipt Date: 20220327
  Transmission Date: 20220423
  Serious: Yes (Other)
  Sender: FDA-Public Use
  Company Number: CA-ABBVIE-21K-028-3828378-00

PATIENT
  Age: 61 Year
  Sex: Female
  Weight: 60 kg

DRUGS (7)
  1. RINVOQ [Suspect]
     Active Substance: UPADACITINIB
     Indication: Rheumatoid arthritis
     Route: 048
     Dates: start: 20201217, end: 20210312
  2. RINVOQ [Suspect]
     Active Substance: UPADACITINIB
     Route: 048
     Dates: start: 20210323, end: 20210412
  3. RINVOQ [Suspect]
     Active Substance: UPADACITINIB
     Route: 048
     Dates: start: 20210422
  4. TRAMADOL [Concomitant]
     Active Substance: TRAMADOL
     Indication: Rheumatoid arthritis
     Dosage: AS NEEDED
     Route: 048
     Dates: start: 20170323
  5. HYDROXYCHLOROQUINE [Concomitant]
     Active Substance: HYDROXYCHLOROQUINE
     Indication: Rheumatoid arthritis
     Route: 048
     Dates: start: 20170308
  6. LEFLUNOMIDE [Concomitant]
     Active Substance: LEFLUNOMIDE
     Indication: Rheumatoid arthritis
     Route: 048
     Dates: start: 20190416, end: 202101
  7. LEFLUNOMIDE [Concomitant]
     Active Substance: LEFLUNOMIDE
     Route: 048
     Dates: start: 202101, end: 20210317

REACTIONS (1)
  - Tendon rupture [Recovered/Resolved]

NARRATIVE: CASE EVENT DATE: 20210212
